FAERS Safety Report 4383473-2 (Version None)
Quarter: 2004Q2

REPORT INFORMATION
  Report Type: 
  Country: None (occurrence: None)
  Receive Date: 20040618
  Receipt Date: 20040528
  Transmission Date: 20050107
  Serious: Yes (Death)
  Sender: FDA-Public Use
  Company Number: US_0406103369

PATIENT
  Age: 87 Year
  Sex: Male

DRUGS (2)
  1. HUMULIN 70/30 [Suspect]
     Dates: start: 20020401
  2. HUMULIN N [Suspect]
     Dates: start: 20011201, end: 20020401

REACTIONS (1)
  - MEDICATION ERROR [None]
